FAERS Safety Report 6119457-3 (Version None)
Quarter: 2009Q1

REPORT INFORMATION
  Report Type: 
  Country: None (occurrence: None)
  Receive Date: 20090316
  Receipt Date: 20090310
  Transmission Date: 20090719
  Serious: Yes (Congenital Anomaly)
  Sender: FDA-Public Use
  Company Number: A0773123A

PATIENT

DRUGS (4)
  1. LAMOTRIGINE [Suspect]
     Indication: BIPOLAR DISORDER
     Dosage: 50MG PER DAY
     Dates: start: 20081113
  2. VITAMIN TAB [Concomitant]
     Dosage: 1TAB PER DAY
  3. TRAZODONE HCL [Concomitant]
  4. LITHIUM CARBONATE [Concomitant]

REACTIONS (3)
  - DRUG EXPOSURE DURING PREGNANCY [None]
  - HEART DISEASE CONGENITAL [None]
  - LABORATORY TEST ABNORMAL [None]
